FAERS Safety Report 9049017 (Version 1)
Quarter: 2013Q1

REPORT INFORMATION
  Report Type: Spontaneous
  Country: IT (occurrence: None)
  Receive Date: 20130117
  Receipt Date: 20130117
  Transmission Date: 20140127
  Serious: Yes (Other)
  Sender: FDA-Public Use
  Company Number: 1556609

PATIENT
  Age: 54 Year
  Sex: Female

DRUGS (2)
  1. ANZATAX [Suspect]
     Indication: LUNG CANCER METASTATIC
     Dosage: 200 MG MILLIGRAM(S) (CYCLICAL), INTRAVENOUS (NOT OTHERWISE SPECIFIED)
     Route: 042
     Dates: start: 20121122, end: 20121213
  2. CARBOPLATIN [Concomitant]

REACTIONS (6)
  - Bronchospasm [None]
  - Erythema [None]
  - Vertigo [None]
  - Dyspnoea [None]
  - Hypotension [None]
  - Sense of oppression [None]
